FAERS Safety Report 5274525-3 (Version None)
Quarter: 2007Q1

REPORT INFORMATION
  Report Type: 
  Country: None (occurrence: None)
  Receive Date: 20070320
  Receipt Date: 20070307
  Transmission Date: 20070707
  Serious: Yes (Other)
  Sender: FDA-Public Use
  Company Number: GXKR2007GB02340

PATIENT
  Age: 71 Year
  Sex: Male
  Weight: 86 kg

DRUGS (3)
  1. SIMVASTATIN [Suspect]
     Indication: BLOOD CHOLESTEROL INCREASED
     Dosage: 5 MG, ORAL
     Route: 048
     Dates: start: 20050701, end: 20051101
  2. ASPIRIN [Concomitant]
  3. GLICLAZIDE (GLICLAZIDE) [Concomitant]

REACTIONS (2)
  - CHILLS [None]
  - MALAISE [None]
